FAERS Safety Report 6162696-6 (Version None)
Quarter: 2009Q2

REPORT INFORMATION
  Report Type: 
  Country: None (occurrence: None)
  Receive Date: 20090421
  Receipt Date: 20010626
  Transmission Date: 20091009
  Serious: No
  Sender: FDA-Public Use
  Company Number: US-SOLVAY-00201002902

PATIENT
  Sex: Female

DRUGS (3)
  1. DESOGEN [Concomitant]
     Indication: CONTRACEPTION
     Dosage: DAILY DOSE: 1 DF.
     Route: 048
  2. ANDROGEL [Suspect]
     Indication: ACCIDENTAL EXPOSURE
     Dosage: DAILY DOSE: UNK. FREQUENCY:UNKNOWN
     Route: 062
  3. NSAID [Concomitant]
     Indication: ILL-DEFINED DISORDER
     Dosage: DAILY DOSE: UNK. FREQUENCY:UNKNOWN
     Route: 048

REACTIONS (1)
  - MENORRHAGIA [None]
